FAERS Safety Report 19007179 (Version 1)
Quarter: 2021Q1

REPORT INFORMATION
  Report Type: Spontaneous
  Country: US (occurrence: US)
  Receive Date: 20210315
  Receipt Date: 20210315
  Transmission Date: 20210420
  Serious: Yes (Hospitalization, Other)
  Sender: FDA-Public Use
  Company Number: None

PATIENT
  Age: 53 Year
  Sex: Female
  Weight: 102 kg

DRUGS (1)
  1. BAMLANIVIMAB. [Suspect]
     Active Substance: BAMLANIVIMAB
     Indication: COVID-19
     Dosage: ?          OTHER FREQUENCY:ONCE;?
     Route: 042
     Dates: start: 20210304, end: 20210304

REACTIONS (8)
  - Retching [None]
  - Pain [None]
  - Drug ineffective [None]
  - Oxygen saturation decreased [None]
  - Disease progression [None]
  - Chest pain [None]
  - Back pain [None]
  - Malaise [None]

NARRATIVE: CASE EVENT DATE: 20210307
